FAERS Safety Report 17239450 (Version 1)
Quarter: 2020Q1

REPORT INFORMATION
  Report Type: Spontaneous
  Country: CA (occurrence: CA)
  Receive Date: 20200106
  Receipt Date: 20200106
  Transmission Date: 20200409
  Serious: Yes (Other)
  Sender: FDA-Public Use
  Company Number: CA-TEVA-2020-CA-1163783

PATIENT
  Age: 3 Year
  Sex: Female

DRUGS (3)
  1. DEXAMETHASONE. [Concomitant]
     Active Substance: DEXAMETHASONE
  2. METHOTREXATE. [Suspect]
     Active Substance: METHOTREXATE
     Indication: GRANULOMATOSIS WITH POLYANGIITIS
     Route: 058
  3. PREDNISONE. [Concomitant]
     Active Substance: PREDNISONE
     Indication: GRANULOMATOSIS WITH POLYANGIITIS
     Dosage: 1 MG/KG DAILY;
     Route: 048

REACTIONS (6)
  - Off label use [Unknown]
  - Transaminases increased [Recovering/Resolving]
  - Drug effective for unapproved indication [Unknown]
  - Product use issue [Unknown]
  - Chronic hepatitis [Recovering/Resolving]
  - Hepatotoxicity [Recovering/Resolving]
